FAERS Safety Report 10617343 (Version 2)
Quarter: 2016Q2

REPORT INFORMATION
  Report Type: Spontaneous
  Country: US (occurrence: US)
  Receive Date: 20141201
  Receipt Date: 20160526
  Transmission Date: 20160815
  Serious: Yes (Death, Hospitalization)
  Sender: FDA-Public Use
  Company Number: US-GLAXOSMITHKLINE-US2014GSK028554

PATIENT
  Sex: Female

DRUGS (4)
  1. FLOLAN [Suspect]
     Active Substance: EPOPROSTENOL SODIUM
     Dosage: 64 NG/KG/MIN, CO
     Route: 042
     Dates: start: 19991119
  2. WARFARIN [Concomitant]
     Active Substance: WARFARIN
  3. TRACLEER [Concomitant]
     Active Substance: BOSENTAN
  4. FLOLAN [Suspect]
     Active Substance: EPOPROSTENOL SODIUM
     Indication: PULMONARY ARTERIAL HYPERTENSION
     Dosage: 64 NG/KG/MIN, CONTINUOUS
     Route: 042
     Dates: start: 19991119

REACTIONS (2)
  - End stage renal disease [Fatal]
  - Renal disorder [Unknown]
